FAERS Safety Report 17550281 (Version 1)
Quarter: 2020Q1

REPORT INFORMATION
  Report Type: Spontaneous
  Country: FR (occurrence: FR)
  Receive Date: 20200317
  Receipt Date: 20200317
  Transmission Date: 20200409
  Serious: Yes (Life-Threatening)
  Sender: FDA-Public Use
  Company Number: FR-MYLANLABS-2020M1027064

PATIENT
  Age: 74 Year
  Sex: Female

DRUGS (5)
  1. ESMERON [Suspect]
     Active Substance: ROCURONIUM BROMIDE
     Indication: ANAESTHESIA
     Dosage: NON RENSEIGN?E
     Route: 042
     Dates: start: 20190920, end: 20190920
  2. ETOMIDATE. [Suspect]
     Active Substance: ETOMIDATE
     Indication: ANAESTHESIA
     Dosage: NON RENSEIGN?E
     Route: 042
     Dates: start: 20190920, end: 20190920
  3. PROPOFOL. [Suspect]
     Active Substance: PROPOFOL
     Indication: ANAESTHESIA
     Dosage: NON RENSEIGN?E
     Route: 042
     Dates: start: 20190920, end: 20190920
  4. REMIFENTANIL [Suspect]
     Active Substance: REMIFENTANIL
     Indication: ANAESTHESIA
     Dosage: NON RENSEIGN?E
     Route: 042
     Dates: start: 20190920, end: 20190920
  5. KETAMINE [Suspect]
     Active Substance: KETAMINE
     Indication: ANAESTHESIA
     Dosage: NON RENSEIGN?E
     Route: 042
     Dates: start: 20190920, end: 20190920

REACTIONS (1)
  - Anaphylactic shock [Recovered/Resolved]

NARRATIVE: CASE EVENT DATE: 20190920
